FAERS Safety Report 9528095 (Version 1)
Quarter: 2013Q3

REPORT INFORMATION
  Report Type: Spontaneous
  Country: US (occurrence: US)
  Receive Date: 20130917
  Receipt Date: 20130917
  Transmission Date: 20140515
  Serious: No
  Sender: FDA-Public Use
  Company Number: US-B.I. PHARMACEUTICALS,INC./RIDGEFIELD-2013-BI-27349BP

PATIENT
  Age: 72 Year
  Sex: Female

DRUGS (4)
  1. COMBIVENT [Suspect]
     Indication: CHRONIC OBSTRUCTIVE PULMONARY DISEASE
     Dosage: STRENGTH: 20 MCG / 100 MCG; DAILY DOSE : 160 MG/ 800 MG
     Route: 055
     Dates: start: 2013
  2. COMBIVENT [Suspect]
     Indication: CHRONIC OBSTRUCTIVE PULMONARY DISEASE
     Dosage: STRENGH: 18MCG/103; DAILY DOSE: 144 MCG-824
     Route: 055
  3. COMBIVENT INHALATION AEROSOL [Concomitant]
     Dosage: STRENGTH: 18 MCG/ 103 MCG;
     Route: 055
  4. THYROXINE [Concomitant]
     Indication: METABOLIC DISORDER
     Route: 048

REACTIONS (10)
  - Dyspnoea [Not Recovered/Not Resolved]
  - Chronic obstructive pulmonary disease [Unknown]
  - Product quality issue [Unknown]
  - Oropharyngeal pain [Not Recovered/Not Resolved]
  - Product quality issue [Not Recovered/Not Resolved]
  - Drug effect decreased [Recovered/Resolved]
  - Productive cough [Not Recovered/Not Resolved]
  - Foreign body [Recovered/Resolved]
  - Throat tightness [Recovered/Resolved]
  - Medication error [Not Recovered/Not Resolved]
